FAERS Safety Report 7213137-9 (Version None)
Quarter: 2011Q1

REPORT INFORMATION
  Report Type: 
  Country: None (occurrence: None)
  Receive Date: 20110106
  Receipt Date: 20110105
  Transmission Date: 20110831
  Serious: Yes (Hospitalization)
  Sender: FDA-Public Use
  Company Number: US-BRISTOL-MYERS SQUIBB COMPANY-15171226

PATIENT
  Sex: Female

DRUGS (3)
  1. AVANDIA [Suspect]
     Indication: DIABETES MELLITUS
     Dosage: TABLET
     Route: 065
  2. PRANDIN [Suspect]
     Indication: DIABETES MELLITUS
     Route: 065
  3. GLUCOPHAGE [Suspect]
     Indication: DIABETES MELLITUS
     Route: 065

REACTIONS (1)
  - HEPATIC FAILURE [None]
